FAERS Safety Report 6234505-8 (Version None)
Quarter: 2009Q2

REPORT INFORMATION
  Report Type: 
  Country: None (occurrence: None)
  Receive Date: 20090618
  Receipt Date: 20081030
  Transmission Date: 20091009
  Serious: No
  Sender: FDA-Public Use
  Company Number: US-BRISTOL-MYERS SQUIBB COMPANY-14404404

PATIENT
  Sex: Male

DRUGS (1)
  1. SINEMET [Suspect]
     Indication: TREMOR
     Route: 048

REACTIONS (1)
  - DRUG INEFFECTIVE [None]
